FAERS Safety Report 11474825 (Version 1)
Quarter: 2015Q3

REPORT INFORMATION
  Report Type: Spontaneous
  Country: US (occurrence: US)
  Receive Date: 20150908
  Receipt Date: 20150908
  Transmission Date: 20151125
  Serious: No
  Sender: FDA-Public Use
  Company Number: US-JAZZ-2014-US-005481

PATIENT
  Age: 29 Year
  Sex: Female
  Weight: 67.57 kg

DRUGS (20)
  1. CLARITIN [Concomitant]
     Active Substance: LORATADINE
     Indication: HYPERSENSITIVITY
     Dosage: 10 MG, PRN
     Route: 048
  2. XYREM [Suspect]
     Active Substance: SODIUM OXYBATE
     Dosage: 2.25 G, BID
     Route: 048
     Dates: start: 20140307, end: 2014
  3. BUSPAR [Concomitant]
     Active Substance: BUSPIRONE HYDROCHLORIDE
     Indication: ANXIETY
     Dosage: 1 TABLET, BID
     Route: 048
  4. ALLERGY MEDICATION [Concomitant]
     Active Substance: DIPHENHYDRAMINE HYDROCHLORIDE
     Indication: PRODUCT USED FOR UNKNOWN INDICATION
     Dosage: 2 X WEEK 1 CC QWK
     Route: 058
  5. XANAX [Concomitant]
     Active Substance: ALPRAZOLAM
     Indication: PRODUCT USED FOR UNKNOWN INDICATION
     Dosage: 0.5 MG ONE TABLET QPM (EVERY EVENING) PRN
     Route: 048
  6. RITALIN [Concomitant]
     Active Substance: METHYLPHENIDATE HYDROCHLORIDE
     Indication: NARCOLEPSY
     Dosage: 10 MG, BID, WHEN NEEDED
     Route: 048
  7. WELLBUTRIN SR [Concomitant]
     Active Substance: BUPROPION HYDROCHLORIDE
     Indication: DEPRESSION
     Dosage: 150 MG/ 12 HOUR, ONE TABLET BID
     Route: 048
  8. CALCIUM [Concomitant]
     Active Substance: CALCIUM
     Indication: RESTLESS LEGS SYNDROME
     Dosage: UNK
     Route: 048
  9. XYREM [Suspect]
     Active Substance: SODIUM OXYBATE
     Indication: NARCOLEPSY
     Dosage: 2.25 G, BID
     Route: 048
     Dates: start: 200312, end: 200401
  10. TRI-SPRINTEC [Concomitant]
     Active Substance: ETHINYL ESTRADIOL\NORGESTIMATE
     Indication: CONTRACEPTION
     Dosage: 35 ?G, QD
     Route: 048
  11. WELLBUTRIN SR [Concomitant]
     Active Substance: BUPROPION HYDROCHLORIDE
     Indication: ANXIETY
  12. CONCERTA [Concomitant]
     Active Substance: METHYLPHENIDATE HYDROCHLORIDE
     Indication: NARCOLEPSY
     Dosage: 18 MG/24 HOUR, ONE TABLET BID
     Route: 048
  13. LIBRAX [Concomitant]
     Active Substance: CHLORDIAZEPOXIDE HYDROCHLORIDE\CLIDINIUM BROMIDE
     Indication: IRRITABLE BOWEL SYNDROME
     Dosage: 5 MG-2.5 MG, ONE CAPSULE, BID
     Route: 048
  14. NAPROSYN [Concomitant]
     Active Substance: NAPROXEN
     Indication: ARTHRALGIA
     Dosage: UNK
  15. IRON [Concomitant]
     Active Substance: IRON
     Indication: RESTLESS LEGS SYNDROME
     Dosage: UNK
     Route: 048
  16. ALBUTEROL SULFATE HFA [Concomitant]
     Indication: PRODUCT USED FOR UNKNOWN INDICATION
     Dosage: 1 PUFF, PRN
  17. XYREM [Suspect]
     Active Substance: SODIUM OXYBATE
     Indication: CATAPLEXY
     Dosage: 3 G, BID
     Route: 048
     Dates: start: 200401, end: 2004
  18. XYREM [Suspect]
     Active Substance: SODIUM OXYBATE
     Dosage: 3 G, BID
     Route: 048
     Dates: start: 2014
  19. VITAMINS [Concomitant]
     Active Substance: VITAMINS
     Indication: RESTLESS LEGS SYNDROME
     Dosage: UNK
     Route: 048
  20. BACTRIM [Concomitant]
     Active Substance: SULFAMETHOXAZOLE\TRIMETHOPRIM
     Indication: PRODUCT USED FOR UNKNOWN INDICATION
     Dosage: 1 TABLET QD
     Route: 048

REACTIONS (7)
  - Dyspepsia [Not Recovered/Not Resolved]
  - Gastrooesophageal reflux disease [Not Recovered/Not Resolved]
  - Arthralgia [Not Recovered/Not Resolved]
  - Dysphagia [Not Recovered/Not Resolved]
  - Sleep-related eating disorder [Not Recovered/Not Resolved]
  - Condition aggravated [Not Recovered/Not Resolved]
  - Throat tightness [Recovered/Resolved]

NARRATIVE: CASE EVENT DATE: 201403
